FAERS Safety Report 10052772 (Version 2)
Quarter: 2014Q2

REPORT INFORMATION
  Report Type: Spontaneous
  Country: DE (occurrence: None)
  Receive Date: 20140331
  Receipt Date: 20140602
  Transmission Date: 20141212
  Serious: Yes (Hospitalization)
  Sender: FDA-Public Use
  Company Number: AG-2014-000753

PATIENT
  Age: 88 Year
  Sex: Male

DRUGS (23)
  1. CHLORAMBUCIL [Suspect]
     Indication: CHRONIC LYMPHOCYTIC LEUKAEMIA
     Dates: start: 20140106
  2. OBINUTUZUMAB [Suspect]
     Indication: CHRONIC LYMPHOCYTIC LEUKAEMIA
     Dates: start: 20140106
  3. BISOROLOL (UNKNOWN) [Concomitant]
  4. TEBONIN (UNKNOWN) [Concomitant]
  5. TAMSULOSIN (UNKNOWN) [Concomitant]
  6. FENOTEROL [Concomitant]
  7. ONDANSETRON (UNKOWN) [Concomitant]
  8. TAVEGIL (UNKNOWN) [Concomitant]
  9. PARACETAMOL (UNKNOWN) [Concomitant]
  10. DEXAMETHASONE (UNKNOWN) [Concomitant]
  11. ALLOPURINOL (UNKNOWN) [Concomitant]
  12. OXAZEPAM (UNKNOWN) [Concomitant]
  13. ZOPICLONE (UNKNOWN) [Concomitant]
  14. TAVANIC (UNKNOWN) [Concomitant]
  15. XARELTO (UNKNOWN) [Concomitant]
  16. MARCUMAR (UNKNOWN) [Concomitant]
  17. FRAXIPARIN (UNKNOWN) [Concomitant]
  18. LEVOFLOXACIN (UNKNOWN) [Concomitant]
  19. HUMANALBUMIN (UNKNOWN) [Concomitant]
  20. HYDROCHLOROTHIAZIDE (UNKNOWN) [Concomitant]
  21. INNOHEP (UNKNOWN) [Concomitant]
  22. NOCTAMID [Concomitant]
  23. IPRATROPIUM BROMIDE [Concomitant]

REACTIONS (1)
  - Cholecystitis [None]
